FAERS Safety Report 5062667-7 (Version None)
Quarter: 2006Q3

REPORT INFORMATION
  Report Type: 
  Country: None (occurrence: None)
  Receive Date: 20060724
  Receipt Date: 20060724
  Transmission Date: 20061208
  Serious: Yes (Other)
  Sender: FDA-Public Use
  Company Number: None

PATIENT
  Age: 70 Year
  Sex: Female
  Weight: 86.1834 kg

DRUGS (2)
  1. PERPHENAZINE [Suspect]
     Indication: NAUSEA
     Dosage: 16 MG  1 - 3 TIMES/DAY  ORAL
     Route: 048
     Dates: start: 20060711
  2. PERPHENAZINE [Suspect]
     Indication: VOMITING
     Dosage: 16 MG  1 - 3 TIMES/DAY  ORAL
     Route: 048
     Dates: start: 20060711

REACTIONS (2)
  - FEELING ABNORMAL [None]
  - PHARMACEUTICAL PRODUCT COMPLAINT [None]
